FAERS Safety Report 17366886 (Version 2)
Quarter: 2020Q1

REPORT INFORMATION
  Report Type: Spontaneous
  Country: US (occurrence: US)
  Receive Date: 20200204
  Receipt Date: 20200211
  Transmission Date: 20200409
  Serious: Yes (Death)
  Sender: FDA-Public Use
  Company Number: US-CELGENEUS-USA-20200200535

PATIENT
  Age: 59 Year
  Sex: Male

DRUGS (3)
  1. VELCADE [Concomitant]
     Active Substance: BORTEZOMIB
     Indication: PRODUCT USED FOR UNKNOWN INDICATION
     Route: 065
  2. REVLIMID [Suspect]
     Active Substance: LENALIDOMIDE
     Indication: PLASMA CELL MYELOMA
     Dosage: 25 MILLIGRAM
     Route: 048
     Dates: start: 20190830, end: 20200123
  3. DEXAMETHASONE. [Concomitant]
     Active Substance: DEXAMETHASONE
     Indication: PRODUCT USED FOR UNKNOWN INDICATION
     Route: 065

REACTIONS (5)
  - Immune thrombocytopenic purpura [Fatal]
  - Cytopenia [Fatal]
  - Cholangiocarcinoma [Fatal]
  - Hepatitis C [Fatal]
  - Neoplasm malignant [Fatal]

NARRATIVE: CASE EVENT DATE: 2019
